FAERS Safety Report 22089856 (Version 10)
Quarter: 2025Q2

REPORT INFORMATION
  Report Type: Report from Study
  Country: CA (occurrence: CA)
  Receive Date: 20230313
  Receipt Date: 20250529
  Transmission Date: 20250717
  Serious: Yes (Other)
  Sender: TAKEDA
  Company Number: CA-TAKEDA-2018TUS017067

PATIENT
  Age: 37 Year
  Sex: Male

DRUGS (34)
  1. VEDOLIZUMAB [Suspect]
     Active Substance: VEDOLIZUMAB
     Indication: Colitis ulcerative
  2. VEDOLIZUMAB [Suspect]
     Active Substance: VEDOLIZUMAB
  3. VEDOLIZUMAB [Suspect]
     Active Substance: VEDOLIZUMAB
  4. VEDOLIZUMAB [Suspect]
     Active Substance: VEDOLIZUMAB
  5. VEDOLIZUMAB [Suspect]
     Active Substance: VEDOLIZUMAB
  6. VEDOLIZUMAB [Suspect]
     Active Substance: VEDOLIZUMAB
  7. VEDOLIZUMAB [Suspect]
     Active Substance: VEDOLIZUMAB
  8. VEDOLIZUMAB [Suspect]
     Active Substance: VEDOLIZUMAB
  9. VEDOLIZUMAB [Suspect]
     Active Substance: VEDOLIZUMAB
  10. VEDOLIZUMAB [Suspect]
     Active Substance: VEDOLIZUMAB
     Dosage: 300 MILLIGRAM, Q4WEEKS
     Dates: start: 20250127
  11. VEDOLIZUMAB [Suspect]
     Active Substance: VEDOLIZUMAB
     Dosage: 300 MILLIGRAM, Q4WEEKS
  12. VEDOLIZUMAB [Suspect]
     Active Substance: VEDOLIZUMAB
     Dosage: 300 MILLIGRAM, Q4WEEKS
  13. PERINDOPRIL [Concomitant]
     Active Substance: PERINDOPRIL
  14. PROGRAF [Concomitant]
     Active Substance: TACROLIMUS
     Dosage: 5 MILLIGRAM, BID
     Dates: start: 20221104
  15. PROGRAF [Concomitant]
     Active Substance: TACROLIMUS
  16. VITAMIN D [Concomitant]
     Active Substance: VITAMIN D NOS
  17. CALCIUM CARBONATE [Concomitant]
     Active Substance: CALCIUM CARBONATE
  18. ASPIRIN [Concomitant]
     Active Substance: ASPIRIN
     Dosage: 81 MILLIGRAM, QD
     Dates: start: 20221104
  19. ASPIRIN [Concomitant]
     Active Substance: ASPIRIN
     Dosage: 325 MILLIGRAM, QD
     Dates: start: 20221201
  20. RABEPRAZOLE SODIUM [Concomitant]
     Active Substance: RABEPRAZOLE SODIUM
  21. RABEPRAZOLE SODIUM [Concomitant]
     Active Substance: RABEPRAZOLE SODIUM
  22. MYCOPHENOLATE MOFETIL [Concomitant]
     Active Substance: MYCOPHENOLATE MOFETIL
     Dosage: 250 MILLIGRAM, BID
     Dates: start: 20221104
  23. FELODIPINE [Concomitant]
     Active Substance: FELODIPINE
  24. URSODIOL [Concomitant]
     Active Substance: URSODIOL
     Dosage: 1000 MILLIGRAM, QD
     Dates: start: 20221104
  25. MAGNESIUM OXIDE [Concomitant]
     Active Substance: MAGNESIUM OXIDE
     Dosage: 420 MILLIGRAM, BID
     Dates: start: 20221104
  26. ASACOL [Concomitant]
     Active Substance: MESALAMINE
     Dosage: UNK UNK, BID
  27. PREDNISONE [Concomitant]
     Active Substance: PREDNISONE
     Indication: Nasal polyps
     Dates: start: 20221104, end: 20221201
  28. MESALAMINE [Concomitant]
     Active Substance: MESALAMINE
  29. ATARAX [Concomitant]
     Active Substance: HYDROXYZINE HYDROCHLORIDE
  30. METFORMIN [Concomitant]
     Active Substance: METFORMIN HYDROCHLORIDE
     Dates: start: 20220601, end: 20221201
  31. RANITIDINE [Concomitant]
     Active Substance: RANITIDINE
     Dosage: 150 MILLIGRAM, QD
     Dates: start: 20221104, end: 20230301
  32. VALCYTE [Concomitant]
     Active Substance: VALGANCICLOVIR HYDROCHLORIDE
  33. SEPTRA [Concomitant]
     Active Substance: SULFAMETHOXAZOLE\TRIMETHOPRIM
     Dates: start: 20221104, end: 20221201
  34. BASAGLAR [Concomitant]
     Active Substance: INSULIN GLARGINE
     Dosage: UNK UNK, QD
     Dates: start: 20221104

REACTIONS (4)
  - Hypertension [Not Recovered/Not Resolved]
  - Body temperature increased [Unknown]
  - Heart rate increased [Unknown]
  - Poor venous access [Unknown]

NARRATIVE: CASE EVENT DATE: 20180514
